FAERS Safety Report 25228245 (Version 3)
Quarter: 2025Q4

REPORT INFORMATION
  Report Type: Report from Study
  Country: EU (occurrence: None)
  Receive Date: 20250423
  Receipt Date: 20251224
  Transmission Date: 20260118
  Serious: Yes (Other)
  Sender: UCB
  Company Number: EU-UCBSA-2025015742

PATIENT
  Age: 39 Year

DRUGS (4)
  1. ZILUCOPLAN [Suspect]
     Active Substance: ZILUCOPLAN
     Indication: Myasthenia gravis
     Dosage: 23 MILLIGRAM, ONCE DAILY (QD)
  2. Kalymin [Concomitant]
     Indication: Product used for unknown indication
  3. CELLCEPT [Concomitant]
     Active Substance: MYCOPHENOLATE MOFETIL
     Indication: Product used for unknown indication
  4. PREDNISOLONE [Concomitant]
     Active Substance: PREDNISOLONE
     Indication: Product used for unknown indication
     Dosage: 2.5 MILLIGRAM, EV 2 DAYS (QOD)

REACTIONS (15)
  - Myasthenia gravis [Unknown]
  - Infection [Recovered/Resolved]
  - Back pain [Unknown]
  - Panic attack [Unknown]
  - Fatigue [Unknown]
  - Arthralgia [Unknown]
  - Hyperacusis [Unknown]
  - Irritability [Unknown]
  - Infection susceptibility increased [Unknown]
  - Menstruation irregular [Unknown]
  - Osteopenia [Unknown]
  - Gastrointestinal infection [Recovered/Resolved]
  - Oropharyngeal pain [Recovered/Resolved]
  - Rhinorrhoea [Recovered/Resolved]
  - Cough [Recovered/Resolved]
